FAERS Safety Report 15276975 (Version 3)
Quarter: 2020Q2

REPORT INFORMATION
  Report Type: Report from Study
  Country: BR (occurrence: BR)
  Receive Date: 20180814
  Receipt Date: 20200609
  Transmission Date: 20200713
  Serious: Yes (Hospitalization)
  Sender: FDA-Public Use
  Company Number: BR-TAKEDA-2018TUS023748

PATIENT
  Age: 49 Year
  Sex: Male

DRUGS (1)
  1. VEDOLIZUMAB [Suspect]
     Active Substance: VEDOLIZUMAB
     Indication: CROHN^S DISEASE
     Dosage: 300 MILLIGRAM
     Route: 042
     Dates: start: 20180625, end: 20200318

REACTIONS (4)
  - Vomiting [Unknown]
  - Crohn^s disease [Unknown]
  - Wrong patient received product [Unknown]
  - Off label use [Unknown]

NARRATIVE: CASE EVENT DATE: 20180702
